FAERS Safety Report 4711588-5 (Version None)
Quarter: 2005Q3

REPORT INFORMATION
  Report Type: 
  Country: None (occurrence: None)
  Receive Date: 20050706
  Receipt Date: 20050330
  Transmission Date: 20060218
  Serious: No
  Sender: FDA-Public Use
  Company Number: US123903

PATIENT
  Age: 40 Year
  Sex: Male

DRUGS (11)
  1. SENSIPAR [Suspect]
     Indication: HYPERPARATHYROIDISM SECONDARY
     Dosage: 30 MG, 1 IN 1 DAYS, PO
     Route: 048
     Dates: start: 20050304, end: 20050425
  2. ALBUTEROL SULFATE [Concomitant]
  3. PANTOPRAZOLE SODIUM [Concomitant]
  4. CARVEDILOL [Concomitant]
  5. DIATX [Concomitant]
  6. DIGOXIN [Concomitant]
  7. GLIBENCLAMIDE [Concomitant]
  8. FENOFIBRATE [Concomitant]
  9. DOXERCALCEROL [Concomitant]
  10. VENOFER [Concomitant]
  11. EPOGEN [Concomitant]

REACTIONS (2)
  - PRURITUS [None]
  - RASH GENERALISED [None]
